FAERS Safety Report 4718975-X (Version None)
Quarter: 2005Q3

REPORT INFORMATION
  Report Type: 
  Country: None (occurrence: None)
  Receive Date: 20050719
  Receipt Date: 20050630
  Transmission Date: 20060218
  Serious: Yes (Death, Hospitalization)
  Sender: FDA-Public Use
  Company Number: ACO_0175_2005

PATIENT
  Age: 83 Year
  Sex: Female

DRUGS (3)
  1. TERNELIN [Suspect]
     Indication: BACK PAIN
     Dosage: 1 MG QDAY; PO
     Route: 048
     Dates: start: 20050426, end: 20050101
  2. SOLANTAL [Suspect]
     Dosage: 50 MG QDAY; PO
     Route: 048
     Dates: start: 20050426, end: 20050101
  3. MARZULENE [Concomitant]

REACTIONS (3)
  - BODY TEMPERATURE DECREASED [None]
  - DRUG INTERACTION [None]
  - MYOCARDIAL INFARCTION [None]
